FAERS Safety Report 4467725-3 (Version None)
Quarter: 2004Q4

REPORT INFORMATION
  Report Type: 
  Country: None (occurrence: None)
  Receive Date: 20041004
  Receipt Date: 20041004
  Transmission Date: 20050328
  Serious: Yes (Hospitalization)
  Sender: FDA-Public Use
  Company Number: None

PATIENT
  Sex: Male
  Weight: 79.3795 kg

DRUGS (2)
  1. ZOLOFT [Suspect]
     Indication: DEPRESSION
     Dosage: 1 PILL DAILY ORAL
     Route: 048
  2. LEXAPRO [Suspect]
     Dosage: 1 PILL DAILY

REACTIONS (5)
  - ABNORMAL BEHAVIOUR [None]
  - AGGRESSION [None]
  - HOSTILITY [None]
  - LEGAL PROBLEM [None]
  - SUICIDAL IDEATION [None]
